FAERS Safety Report 25223900 (Version 1)
Quarter: 2025Q2

REPORT INFORMATION
  Report Type: Spontaneous
  Country: US (occurrence: US)
  Receive Date: 20250422
  Receipt Date: 20250422
  Transmission Date: 20250716
  Serious: Yes (Other)
  Sender: TEVA
  Company Number: US-TEVA-VS-3322222

PATIENT
  Age: 11 Year
  Sex: Male

DRUGS (1)
  1. SCOPOLAMINE [Suspect]
     Active Substance: SCOPOLAMINE
     Indication: Motion sickness
     Route: 062

REACTIONS (5)
  - Hallucination [Recovered/Resolved]
  - Agitation [Unknown]
  - Confusional state [Unknown]
  - Product quality issue [Unknown]
  - Psychotic disorder [Recovered/Resolved]
